FAERS Safety Report 14880253 (Version 2)
Quarter: 2018Q4

REPORT INFORMATION
  Report Type: Spontaneous
  Country: FR (occurrence: FR)
  Receive Date: 20180511
  Receipt Date: 20181026
  Transmission Date: 20190204
  Serious: Yes (Other)
  Sender: FDA-Public Use
  Company Number: FR-MERCK KGAA-2047610

PATIENT
  Age: 41 Year
  Sex: Female

DRUGS (1)
  1. EUTHYROX [Suspect]
     Active Substance: LEVOTHYROXINE SODIUM
     Indication: PRODUCT USED FOR UNKNOWN INDICATION
     Route: 048
     Dates: start: 201704

REACTIONS (37)
  - Hypertension [Recovered/Resolved]
  - Menstrual disorder [Recovered/Resolved]
  - Anxiety [Recovered/Resolved]
  - Extrasystoles [Recovered/Resolved]
  - Tremor [Recovered/Resolved]
  - Nausea [Recovered/Resolved]
  - Diarrhoea [Recovered/Resolved]
  - Confusional state [None]
  - Dysmenorrhoea [Recovered/Resolved]
  - Mean cell volume decreased [None]
  - Head discomfort [Recovered/Resolved]
  - Blood thyroid stimulating hormone decreased [None]
  - Disturbance in attention [Recovered/Resolved]
  - Migraine [Recovered/Resolved]
  - Fatigue [Recovered/Resolved]
  - Fear [Recovered/Resolved]
  - Anger [Recovered/Resolved]
  - Tachycardia [Recovered/Resolved]
  - Thyroxine increased [None]
  - Dizziness [Recovered/Resolved]
  - Aphasia [Recovered/Resolved]
  - Onychoclasis [Recovered/Resolved]
  - General physical health deterioration [Recovered/Resolved]
  - Hyperhidrosis [Recovered/Resolved]
  - Vision blurred [Recovered/Resolved]
  - Weight increased [Recovered/Resolved]
  - Gastritis [Recovered/Resolved]
  - Gastrooesophageal reflux disease [Recovered/Resolved]
  - Malaise [Recovered/Resolved]
  - Hyperchlorhydria [Recovered/Resolved]
  - Dyspnoea [Recovered/Resolved]
  - Impaired quality of life [Recovered/Resolved]
  - Insomnia [Recovered/Resolved]
  - Loss of personal independence in daily activities [Recovered/Resolved]
  - Sleep disorder [Recovered/Resolved]
  - Stress [Recovered/Resolved]
  - Headache [Recovered/Resolved]

NARRATIVE: CASE EVENT DATE: 2017
